FAERS Safety Report 7783222-1 (Version None)
Quarter: 2011Q3

REPORT INFORMATION
  Report Type: 
  Country: None (occurrence: None)
  Receive Date: 20110928
  Receipt Date: 20110914
  Transmission Date: 20111222
  Serious: Yes (Other)
  Sender: FDA-Public Use
  Company Number: TR-MYLANLABS-2011S1019743

PATIENT
  Age: 62 Year
  Sex: Male

DRUGS (2)
  1. AZATHIOPRINE [Suspect]
     Indication: PEMPHIGUS
     Dosage: 150 MG/DAY
     Route: 065
  2. METHYLPREDNISOLONE [Suspect]
     Indication: PEMPHIGUS
     Dosage: 120 MG/DAY
     Route: 065

REACTIONS (1)
  - ENDOCARDITIS STAPHYLOCOCCAL [None]
